FAERS Safety Report 4565195-8 (Version None)
Quarter: 2005Q1

REPORT INFORMATION
  Report Type: 
  Country: None (occurrence: None)
  Receive Date: 20050127
  Receipt Date: 20050127
  Transmission Date: 20050727
  Serious: Yes (Hospitalization)
  Sender: FDA-Public Use
  Company Number: None

PATIENT
  Age: 62 Year
  Sex: Male
  Weight: 130.3638 kg

DRUGS (6)
  1. TAXOL [Suspect]
     Indication: NON-SMALL CELL LUNG CANCER
     Dosage: IV DICTATED PER RESEARCH TIAL PROTOCOL RTOG 0324
     Route: 042
     Dates: start: 20040419, end: 20040706
  2. CARBOPLATIN [Suspect]
     Dosage: IV DICTATED PER RESEARCH TIAL PROTOCOL RTOG 0324
     Route: 042
  3. C225 [Concomitant]
  4. TESSALON [Concomitant]
  5. PROCRIT [Concomitant]
  6. RADIATION THERAPY [Concomitant]

REACTIONS (8)
  - ASTHENIA [None]
  - BONE MARROW DEPRESSION [None]
  - CHILLS [None]
  - NEUTROPENIA [None]
  - OESOPHAGITIS [None]
  - PYREXIA [None]
  - RADIATION INJURY [None]
  - STOMATITIS [None]
